FAERS Safety Report 7532940-9 (Version None)
Quarter: 2011Q2

REPORT INFORMATION
  Report Type: 
  Country: None (occurrence: None)
  Receive Date: 20110607
  Receipt Date: 20110607
  Transmission Date: 20111010
  Serious: Yes (Hospitalization)
  Sender: FDA-Public Use
  Company Number: None

PATIENT
  Age: 71 Year
  Sex: Male

DRUGS (11)
  1. LISINOPRIL [Concomitant]
  2. PIOGLITAZONE [Suspect]
     Indication: TYPE 2 DIABETES MELLITUS
     Dosage: 45MG DAILY PO
     Route: 048
     Dates: start: 20041118, end: 20110226
  3. VERPAMIL HCL [Concomitant]
  4. PAROXETINE HCL [Concomitant]
  5. GABAPENTIN [Concomitant]
  6. ESOMEPRAZOLE MAGNESIUM [Concomitant]
  7. GLIPIZIDE [Concomitant]
  8. SITAGLIPTIN/METFORMIN [Concomitant]
  9. HYDROCHLOROTHIAZIDE [Concomitant]
  10. ASPIRIN [Concomitant]
  11. SIMVASTATIN [Concomitant]

REACTIONS (1)
  - CARDIAC FAILURE CONGESTIVE [None]
